FAERS Safety Report 10598299 (Version 2)
Quarter: 2015Q1

REPORT INFORMATION
  Report Type: Spontaneous
  Country: US (occurrence: None)
  Receive Date: 20141113
  Receipt Date: 20150102
  Transmission Date: 20150720
  Serious: No
  Sender: FDA-Public Use
  Company Number: US2014GSK015566

PATIENT
  Age: 59 Year
  Sex: Male

DRUGS (24)
  1. TESTOSTERONE CYPIONATE (TESTOSTERONE CIPIONATE) [Concomitant]
  2. HYZAAR (HYDROCHLOROTHIAZIDE + LOSARTANT POTASSIUM) [Concomitant]
  3. FLOMAX (NOS) (AMBIGUOUS MEDICATION) [Concomitant]
  4. ASPRIN (ACETYLSALICYLIC ACID) [Concomitant]
     Dates: start: 20140925
  5. ALLOPURINOL. [Concomitant]
     Active Substance: ALLOPURINOL
  6. ROPINIROLE. [Concomitant]
     Active Substance: ROPINIROLE
  7. ARIMIDEX [Concomitant]
     Active Substance: ANASTROZOLE
  8. POTASSIUM CITRATE. [Concomitant]
     Active Substance: POTASSIUM CITRATE
  9. COQ10 (UBIDECARENONE) [Concomitant]
     Active Substance: UBIDECARENONE
  10. CLOPIDOGREL [Concomitant]
     Active Substance: CLOPIDOGREL BISULFATE
  11. NORCO (HYDROCODONE BITARTRATE + PARACETAMOL) [Concomitant]
  12. ROSUVASTATIN [Concomitant]
     Active Substance: ROSUVASTATIN
  13. OMEGA 3 (OMEGA-3 MARINE TRIGLYCERIDES) [Concomitant]
  14. BUMEX (BUMETANIDE) [Concomitant]
  15. ZANTAC [Concomitant]
     Active Substance: RANITIDINE HYDROCHLORIDE
  16. TIVICAY [Suspect]
     Active Substance: DOLUTEGRAVIR SODIUM
     Indication: HIV INFECTION
     Dates: start: 20140925
  17. NEURONTIN [Concomitant]
     Active Substance: GABAPENTIN
  18. METOLAZONE. [Concomitant]
     Active Substance: METOLAZONE
  19. PERCOCET (OXYCODONE HYDROCHLORIDE + PARACETAMOL) [Concomitant]
  20. TRICOR (TRICOR NOS) [Concomitant]
  21. EPZICOM (ABACAVIR + LAMIVIDINE) [Concomitant]
  22. LORATADINE. [Concomitant]
     Active Substance: LORATADINE
  23. MVI (VITAMINS NOS) [Concomitant]
  24. N-ACETYLCYSTEIN (ACETYLCYSTEINE) [Concomitant]

REACTIONS (4)
  - Pain [None]
  - Fatigue [None]
  - Headache [None]
  - Arthralgia [None]

NARRATIVE: CASE EVENT DATE: 20140925
